FAERS Safety Report 9441788 (Version 1)
Quarter: 2013Q3

REPORT INFORMATION
  Report Type: Spontaneous
  Country: GB (occurrence: GB)
  Receive Date: 20130801
  Receipt Date: 20130801
  Transmission Date: 20140515
  Serious: No
  Sender: FDA-Public Use
  Company Number: AUR-APL-2013-06240

PATIENT
  Age: 26 Year
  Sex: Female

DRUGS (1)
  1. FINASTERIDE (FINASTERIDE) [Suspect]
     Indication: PRODUCT USED FOR UNKNOWN INDICATION

REACTIONS (3)
  - Maternal exposure timing unspecified [None]
  - Hyperemesis gravidarum [None]
  - Occupational exposure to product [None]
